FAERS Safety Report 16457862 (Version 1)
Quarter: 2019Q2

REPORT INFORMATION
  Report Type: Spontaneous
  Country: IT (occurrence: IT)
  Receive Date: 20190620
  Receipt Date: 20190620
  Transmission Date: 20190711
  Serious: Yes (Other)
  Sender: FDA-Public Use
  Company Number: IT-AMGEN-ITASP2019095797

PATIENT
  Age: 34 Year
  Sex: Female

DRUGS (1)
  1. XGEVA [Suspect]
     Active Substance: DENOSUMAB
     Indication: BONE GIANT CELL TUMOUR
     Dosage: 120 MILLIGRAM (AT DAYS 1, 8, 15, 29, AND MONTHLY THEREAFTER)
     Route: 065

REACTIONS (2)
  - Bone giant cell tumour [Unknown]
  - Therapeutic product effect incomplete [Unknown]
